FAERS Safety Report 16319930 (Version 2)
Quarter: 2019Q2

REPORT INFORMATION
  Report Type: Spontaneous
  Country: NL (occurrence: NL)
  Receive Date: 20190516
  Receipt Date: 20190606
  Transmission Date: 20190711
  Serious: Yes (Death, Hospitalization)
  Sender: FDA-Public Use
  Company Number: NL-ACTELION-A-CH2019-190496

PATIENT
  Age: 68 Year
  Sex: Female

DRUGS (1)
  1. OPSUMIT [Suspect]
     Active Substance: MACITENTAN
     Indication: SYSTEMIC SCLERODERMA
     Dosage: 10 MG, QD
     Route: 048
     Dates: end: 20190515

REACTIONS (4)
  - Surgery [Unknown]
  - Death [Fatal]
  - Abdominal pain upper [Unknown]
  - Hypotension [Unknown]

NARRATIVE: CASE EVENT DATE: 201905
